FAERS Safety Report 6976715-8 (Version None)
Quarter: 2010Q3

REPORT INFORMATION
  Report Type: 
  Country: None (occurrence: None)
  Receive Date: 20100910
  Receipt Date: 20100827
  Transmission Date: 20110219
  Serious: Yes (Other)
  Sender: FDA-Public Use
  Company Number: US-ELI_LILLY_AND_COMPANY-US201009000655

PATIENT
  Sex: Female

DRUGS (11)
  1. FORTEO [Suspect]
     Dosage: 20 UG, DAILY (1/D)
  2. METAXALONE [Concomitant]
  3. OMEPRAZOLE [Concomitant]
  4. AVAPRO [Concomitant]
     Indication: HYPERTENSION
  5. SIMVASTATIN [Concomitant]
     Indication: BLOOD CHOLESTEROL INCREASED
  6. ASPIRIN [Concomitant]
  7. FISH OIL [Concomitant]
  8. ASCORBIC ACID [Concomitant]
  9. CALCIUM [Concomitant]
  10. CENTRUM SILVER [Concomitant]
  11. GABTIN [Concomitant]

REACTIONS (7)
  - ACCIDENTAL OVERDOSE [None]
  - DEVICE MALFUNCTION [None]
  - DRUG INEFFECTIVE [None]
  - FIBROMYALGIA [None]
  - HIP ARTHROPLASTY [None]
  - MEDICATION ERROR [None]
  - PAIN [None]
